FAERS Safety Report 5863354-5 (Version None)
Quarter: 2008Q3

REPORT INFORMATION
  Report Type: 
  Country: None (occurrence: None)
  Receive Date: 20080828
  Receipt Date: 20080821
  Transmission Date: 20090109
  Serious: Yes (Disabling, Other)
  Sender: FDA-Public Use
  Company Number: US-JNJFOC-20080702675

PATIENT
  Sex: Female
  Weight: 57.15 kg

DRUGS (1)
  1. ORTHO EVRA [Suspect]
     Indication: CONTRACEPTION
     Route: 062

REACTIONS (12)
  - BACK PAIN [None]
  - CEREBRAL INFARCTION [None]
  - CEREBRAL ISCHAEMIA [None]
  - CEREBROVASCULAR ACCIDENT [None]
  - CEREBROVASCULAR ARTERIOVENOUS MALFORMATION [None]
  - CEREBROVASCULAR DISORDER [None]
  - ENCEPHALOMALACIA [None]
  - FALL [None]
  - GLIOSIS [None]
  - HEAD INJURY [None]
  - HEADACHE [None]
  - HEMIANOPIA HOMONYMOUS [None]
